FAERS Safety Report 21638182 (Version 2)
Quarter: 2022Q4

REPORT INFORMATION
  Report Type: Report from Study
  Country: US (occurrence: US)
  Receive Date: 20221124
  Receipt Date: 20221125
  Transmission Date: 20230112
  Serious: No
  Sender: FDA-Public Use
  Company Number: US-002147023-NVSC2022US260118

PATIENT
  Sex: Female

DRUGS (2)
  1. COSENTYX [Suspect]
     Active Substance: SECUKINUMAB
     Indication: Psoriatic arthropathy
     Dosage: UNK UNK, QW
     Route: 058
  2. COSENTYX [Suspect]
     Active Substance: SECUKINUMAB
     Indication: Psoriasis

REACTIONS (8)
  - Hiatus hernia [Unknown]
  - Reflux gastritis [Unknown]
  - Pain [Unknown]
  - Joint swelling [Recovering/Resolving]
  - Musculoskeletal stiffness [Unknown]
  - Contusion [Unknown]
  - Joint stiffness [Unknown]
  - Psoriasis [Unknown]
